FAERS Safety Report 6644062-X (Version None)
Quarter: 2010Q1

REPORT INFORMATION
  Report Type: 
  Country: None (occurrence: None)
  Receive Date: 20100322
  Receipt Date: 20100309
  Transmission Date: 20100710
  Serious: Yes (Hospitalization)
  Sender: FDA-Public Use
  Company Number: JP-ELI_LILLY_AND_COMPANY-JP201002000990

PATIENT
  Sex: Male
  Weight: 68 kg

DRUGS (2)
  1. ZYPREXA [Suspect]
     Indication: SCHIZOPHRENIA
     Dosage: 10 MG, DAILY (1/D)
     Route: 048
     Dates: start: 20100128, end: 20100202
  2. EURODIN [Concomitant]
     Indication: SLEEP DISORDER
     Dosage: 2 MG, DAILY (1/D)
     Route: 048
     Dates: start: 20100128, end: 20100202

REACTIONS (4)
  - ASTHENIA [None]
  - SCHIZOPHRENIA [None]
  - SOMNOLENCE [None]
  - TREMOR [None]
